FAERS Safety Report 25949588 (Version 1)
Quarter: 2025Q4

REPORT INFORMATION
  Report Type: Spontaneous
  Country: US (occurrence: US)
  Receive Date: 20251022
  Receipt Date: 20251022
  Transmission Date: 20260117
  Serious: Yes (Other)
  Sender: PFIZER
  Company Number: US-PFIZER INC-PV202500022770

PATIENT
  Age: 71 Year
  Sex: Female

DRUGS (3)
  1. NURTEC ODT [Suspect]
     Active Substance: RIMEGEPANT SULFATE
     Indication: Migraine
     Dosage: DISSOLVE 1 TABLET ON TOP OF TONGUE THEN SWALLOW ONCE DAILY AS NEEDED. MAX 1 DOSE IN 24 HOURS
     Route: 048
  2. TRAMADOL [Concomitant]
     Active Substance: TRAMADOL
     Dosage: UNK
  3. KETOROLAC [Concomitant]
     Active Substance: KETOROLAC TROMETHAMINE
     Dosage: UNK

REACTIONS (1)
  - Knee operation [Unknown]
